FAERS Safety Report 5398089-9 (Version None)
Quarter: 2007Q3

REPORT INFORMATION
  Report Type: 
  Country: None (occurrence: None)
  Receive Date: 20070726
  Receipt Date: 20070716
  Transmission Date: 20080115
  Serious: Yes (Hospitalization, Other)
  Sender: FDA-Public Use
  Company Number: US-AMGEN-STX234586

PATIENT
  Sex: Female

DRUGS (3)
  1. ENBREL [Suspect]
     Indication: RHEUMATOID ARTHRITIS
     Route: 058
     Dates: start: 20040801
  2. METHOTREXATE [Concomitant]
     Route: 065
  3. ARAVA [Concomitant]
     Route: 065

REACTIONS (2)
  - NEOPLASM [None]
  - OSTEOARTHRITIS [None]
